FAERS Safety Report 24369905 (Version 1)
Quarter: 2024Q3

REPORT INFORMATION
  Report Type: Spontaneous
  Country: BR (occurrence: BR)
  Receive Date: 20240927
  Receipt Date: 20240927
  Transmission Date: 20241017
  Serious: Yes (Disabling, Other)
  Sender: AUROBINDO
  Company Number: BR-AUROBINDO-AUR-APL-2024-047213

PATIENT
  Age: 31 Year
  Sex: Male
  Weight: 76 kg

DRUGS (11)
  1. MIRTAZAPINE [Suspect]
     Active Substance: MIRTAZAPINE
     Indication: Depression
     Dosage: 30 MILLIGRAM
     Route: 048
     Dates: start: 20240819, end: 20240909
  2. VENLAFAXINE HYDROCHLORIDE [Concomitant]
     Active Substance: VENLAFAXINE HYDROCHLORIDE
     Indication: Social anxiety disorder
     Dosage: 300 MILLIGRAM
     Route: 048
     Dates: start: 2015
  3. VENLAFAXINE HYDROCHLORIDE [Concomitant]
     Active Substance: VENLAFAXINE HYDROCHLORIDE
     Indication: Depression
  4. DIAZEPAM [Concomitant]
     Active Substance: DIAZEPAM
     Indication: Anxiety
     Dosage: 10 MILLIGRAM
     Dates: start: 2015
  5. DIAZEPAM [Concomitant]
     Active Substance: DIAZEPAM
     Indication: Muscle tightness
  6. DIAZEPAM [Concomitant]
     Active Substance: DIAZEPAM
     Indication: Insomnia
  7. RISPERIDONE [Concomitant]
     Active Substance: RISPERIDONE
     Indication: Depersonalisation/derealisation disorder
     Dosage: 2 MILLIGRAM
     Route: 048
     Dates: start: 2017
  8. RISPERIDONE [Concomitant]
     Active Substance: RISPERIDONE
     Indication: Derealisation
  9. RISPERIDONE [Concomitant]
     Active Substance: RISPERIDONE
     Indication: Antidepressant therapy
  10. METHYLPHENIDATE [Concomitant]
     Active Substance: METHYLPHENIDATE
     Indication: Mood swings
     Dosage: 40 MILLIGRAM
     Route: 048
     Dates: start: 2012
  11. PROPRANOLOL HYDROCHLORIDE [Concomitant]
     Active Substance: PROPRANOLOL HYDROCHLORIDE
     Indication: Anxiety
     Dosage: 40 MILLIGRAM
     Route: 048

REACTIONS (3)
  - Oedema mouth [Recovered/Resolved]
  - Oral mucosal erythema [Recovered/Resolved]
  - Drug ineffective [Recovering/Resolving]

NARRATIVE: CASE EVENT DATE: 20240819
